FAERS Safety Report 6107699-2 (Version None)
Quarter: 2009Q1

REPORT INFORMATION
  Report Type: 
  Country: None (occurrence: None)
  Receive Date: 20090309
  Receipt Date: 20090227
  Transmission Date: 20090719
  Serious: Yes (Hospitalization)
  Sender: FDA-Public Use
  Company Number: A0713046A

PATIENT
  Age: 76 Year
  Sex: Male
  Weight: 100 kg

DRUGS (11)
  1. AVANDIA [Suspect]
     Dosage: 8MG PER DAY
     Route: 048
     Dates: start: 20020101, end: 20060101
  2. METFORMIN [Concomitant]
  3. GLUCOTROL [Concomitant]
  4. LASIX [Concomitant]
     Dates: start: 20030206
  5. ELAVIL [Concomitant]
  6. TRILAFON [Concomitant]
  7. ZOCOR [Concomitant]
  8. ALBUTEROL [Concomitant]
  9. SINEMET [Concomitant]
  10. PRILOSEC [Concomitant]
  11. BACLOFEN [Concomitant]

REACTIONS (4)
  - ARTERIOSCLEROSIS [None]
  - CEREBRAL INFARCTION [None]
  - HEMIPARESIS [None]
  - ISCHAEMIA [None]
